FAERS Safety Report 6233130-2 (Version None)
Quarter: 2009Q2

REPORT INFORMATION
  Report Type: 
  Country: None (occurrence: None)
  Receive Date: 20090612
  Receipt Date: 20090602
  Transmission Date: 20091009
  Serious: Yes (Death, Life-Threatening, Hospitalization, Disabling)
  Sender: FDA-Public Use
  Company Number: DSA_33515_2009

PATIENT
  Sex: Female
  Weight: 74.8435 kg

DRUGS (9)
  1. XENAZINE [Suspect]
     Indication: CHOREA
     Dosage: (12.5 MG BID ORAL)
     Route: 048
     Dates: start: 20090316, end: 20090415
  2. AMARYL [Concomitant]
  3. EXFORGE /01634301 [Concomitant]
  4. METFORMIN HCL [Concomitant]
  5. NOVOLOG [Concomitant]
  6. KLONOPIN [Concomitant]
  7. ENABLEX /01760401/ [Concomitant]
  8. ACTONEL [Concomitant]
  9. DICLOFENAC [Concomitant]

REACTIONS (2)
  - DEPRESSION [None]
  - MYOCARDIAL INFARCTION [None]
